FAERS Safety Report 6382014-8 (Version None)
Quarter: 2009Q3

REPORT INFORMATION
  Report Type: 
  Country: None (occurrence: None)
  Receive Date: 20090925
  Receipt Date: 20090914
  Transmission Date: 20100115
  Serious: Yes (Hospitalization)
  Sender: FDA-Public Use
  Company Number: MC200800532

PATIENT
  Age: 82 Year
  Sex: Male
  Weight: 66 kg

DRUGS (14)
  1. BIVALIRUDIN [Suspect]
     Dosage: 50 MG, BOLUS, INTRAVENOUS; 115 MG,  INTRAVENOUS
     Route: 040
     Dates: start: 20081106, end: 20081106
  2. BIVALIRUDIN [Suspect]
     Dosage: 50 MG, BOLUS, INTRAVENOUS; 115 MG,  INTRAVENOUS
     Route: 040
     Dates: start: 20081106, end: 20081106
  3. PLACEBO (PLACEBO) INJECTION [Suspect]
     Dosage: 5 ML, BOLUS, INTRAVENOUS; 80.4 ML, INTRAVENOUS
     Route: 042
     Dates: start: 20081106, end: 20081106
  4. PLACEBO (PLACEBO) INJECTION [Suspect]
     Dosage: 5 ML, BOLUS, INTRAVENOUS; 80.4 ML, INTRAVENOUS
     Route: 042
     Dates: start: 20081106, end: 20081106
  5. CLOPIDOGREL [Suspect]
     Dosage: 4 PRE-PROCEDURE CAPSULES, SINGLE, ORAL
     Route: 048
     Dates: start: 20081106, end: 20081106
  6. CLOPIDOGREL [Suspect]
     Dosage: 4  POST PROCEDURE CAPSULES, SINGLE, ORAL
     Route: 048
     Dates: start: 20081106, end: 20081106
  7. CLOPIDOGREL [Suspect]
     Indication: ANTIPLATELET THERAPY
     Dosage: 75 MG, QD, ORAL
     Route: 048
     Dates: start: 20081106
  8. ASPIRIN [Suspect]
     Indication: ANTIPLATELET THERAPY
     Dosage: 325 MG, QD, ORAL
     Route: 048
     Dates: start: 20081106
  9. HEPARIN [Suspect]
     Indication: ANTICOAGULANT THERAPY
     Dosage: 850 UT, HR, INTRAVENOUS
     Route: 042
     Dates: start: 20081103, end: 20081106
  10. LISINOPRIL [Concomitant]
  11. METOPROLOL TARTRATE [Concomitant]
  12. ISOSORBIDE MONONITRATE [Concomitant]
  13. SIMVASTATIN [Concomitant]
  14. ACETYLCYSTEINE [Concomitant]

REACTIONS (3)
  - FEMORAL BRUIT [None]
  - HAEMATOMA [None]
  - VASCULAR PSEUDOANEURYSM [None]
